FAERS Safety Report 16801414 (Version 1)
Quarter: 2019Q3

REPORT INFORMATION
  Report Type: Report from Study
  Country: TH (occurrence: TH)
  Receive Date: 20190912
  Receipt Date: 20190912
  Transmission Date: 20191005
  Serious: Yes (Hospitalization)
  Sender: FDA-Public Use
  Company Number: TH-BAYER-2019-131187

PATIENT
  Sex: Female

DRUGS (2)
  1. STIVARGA [Suspect]
     Active Substance: REGORAFENIB
     Indication: COLORECTAL CANCER
     Dosage: 120MG DAILY
     Dates: start: 20190516
  2. STIVARGA [Suspect]
     Active Substance: REGORAFENIB
     Indication: COLORECTAL CANCER
     Dosage: DAILY DOSE 80 MG

REACTIONS (11)
  - Thrombocytopenia [None]
  - Hypoaesthesia [None]
  - Off label use [None]
  - Feeding disorder [None]
  - Rash erythematous [None]
  - Loss of consciousness [None]
  - Oral pain [None]
  - Drug hypersensitivity [None]
  - Pain [None]
  - Weight decreased [None]
  - Pain in extremity [None]
